FAERS Safety Report 21380708 (Version 2)
Quarter: 2022Q3

REPORT INFORMATION
  Report Type: Spontaneous
  Country: CN (occurrence: CN)
  Receive Date: 20220927
  Receipt Date: 20220929
  Transmission Date: 20221027
  Serious: Yes (Other)
  Sender: FDA-Public Use
  Company Number: CN-PFIZER INC-PV202200070202

PATIENT
  Age: 64 Year
  Sex: Female
  Weight: 85 kg

DRUGS (1)
  1. METHYLPREDNISOLONE SODIUM SUCCINATE [Suspect]
     Active Substance: METHYLPREDNISOLONE SODIUM SUCCINATE
     Indication: Asthma
     Dosage: 0.25 G, 1X/DAY
     Route: 042
     Dates: start: 20220717, end: 20220818

REACTIONS (1)
  - Localised oedema [Recovering/Resolving]

NARRATIVE: CASE EVENT DATE: 20220718
